FAERS Safety Report 18552933 (Version 2)
Quarter: 2021Q2

REPORT INFORMATION
  Report Type: Spontaneous
  Country: CA (occurrence: CA)
  Receive Date: 20201127
  Receipt Date: 20210525
  Transmission Date: 20210717
  Serious: Yes (Hospitalization, Other)
  Sender: FDA-Public Use
  Company Number: CA-SAMSUNG BIOEPIS-SB-2020-35027

PATIENT
  Age: 59 Year
  Sex: Female

DRUGS (7)
  1. ACETAMINOPHEN AND CODEINE [Concomitant]
     Active Substance: ACETAMINOPHEN\CODEINE PHOSPHATE
     Indication: PRODUCT USED FOR UNKNOWN INDICATION
     Dosage: UNKNOWN
     Route: 065
  2. INFLIXIMAB [Suspect]
     Active Substance: INFLIXIMAB
     Indication: CROHN^S DISEASE
     Route: 042
  3. DILAUDID [Concomitant]
     Active Substance: HYDROMORPHONE HYDROCHLORIDE
     Indication: PRODUCT USED FOR UNKNOWN INDICATION
     Dosage: UNKNOWN
     Route: 065
  4. AMINO ACIDS NOS;CARBOHYDRATES NOS;MINERALS NOS;VITAMINS NOS [Concomitant]
     Indication: PRODUCT USED FOR UNKNOWN INDICATION
     Dosage: UNKNOWN
     Route: 065
  5. TPN [AMINO ACIDS NOS;CARBOHYDRATES NOS;MINERALS NOS;VITAMINS NOS] [Concomitant]
     Active Substance: AMINO ACIDS\CARBOHYDRATES\MINERALS\VITAMINS
     Indication: PRODUCT USED FOR UNKNOWN INDICATION
     Dosage: UNKNOWN
     Route: 065
  6. INFLIXIMAB [Suspect]
     Active Substance: INFLIXIMAB
     Route: 042
  7. GRAVOL [Concomitant]
     Active Substance: DIMENHYDRINATE
     Indication: PRODUCT USED FOR UNKNOWN INDICATION
     Dosage: UNKNOWN
     Route: 065

REACTIONS (20)
  - Arthralgia [Recovered/Resolved]
  - Dizziness [Recovered/Resolved]
  - Nausea [Recovered/Resolved]
  - Osteomyelitis [Recovered/Resolved]
  - Poor venous access [Recovered/Resolved]
  - Blood pressure increased [Recovered/Resolved]
  - Limb fracture [Recovered/Resolved]
  - Headache [Recovered/Resolved]
  - Oxygen saturation abnormal [Recovered/Resolved]
  - Fungal skin infection [Recovered/Resolved]
  - Head discomfort [Recovered/Resolved]
  - Off label use [Recovered/Resolved]
  - Muscular weakness [Recovered/Resolved]
  - Condition aggravated [Unknown]
  - Cough [Recovered/Resolved]
  - Ligament sprain [Recovered/Resolved]
  - Intentional product use issue [Recovered/Resolved]
  - Fall [Recovered/Resolved]
  - Tremor [Recovered/Resolved]
  - Inappropriate schedule of product administration [Recovered/Resolved]
